FAERS Safety Report 6043884-6 (Version None)
Quarter: 2009Q1

REPORT INFORMATION
  Report Type: 
  Country: None (occurrence: None)
  Receive Date: 20090120
  Receipt Date: 20090115
  Transmission Date: 20090719
  Serious: Yes (Hospitalization)
  Sender: FDA-Public Use
  Company Number: FR-ASTRAZENECA-2009CG00201

PATIENT
  Age: 21694 Day
  Sex: Female

DRUGS (5)
  1. ZESTRIL [Suspect]
     Route: 048
     Dates: start: 20081010, end: 20081122
  2. ALLOPURINOL [Suspect]
     Route: 048
     Dates: start: 20081010, end: 20081122
  3. CLAMOXYL [Suspect]
     Route: 048
     Dates: start: 20081114, end: 20081119
  4. GLUCOPHAGE [Suspect]
     Route: 048
     Dates: start: 20081010, end: 20081122
  5. VASTEN [Suspect]
     Route: 048
     Dates: start: 20081010, end: 20081122

REACTIONS (3)
  - ECZEMA [None]
  - HEPATITIS [None]
  - TOXIC SKIN ERUPTION [None]
